FAERS Safety Report 8452272-4 (Version None)
Quarter: 2012Q2

REPORT INFORMATION
  Report Type: 
  Country: None (occurrence: None)
  Receive Date: 20120620
  Receipt Date: 20120404
  Transmission Date: 20120825
  Serious: No
  Sender: FDA-Public Use
  Company Number: US-VERTEX PHARMACEUTICALS INC.-AE-2012-004870

PATIENT
  Sex: Female
  Weight: 109.41 kg

DRUGS (11)
  1. PEGASYS [Concomitant]
     Indication: HEPATITIS C
     Route: 058
     Dates: start: 20120309, end: 20120403
  2. NORVASC [Concomitant]
     Indication: HYPERTENSION
     Route: 048
  3. RIBAVIRIN [Concomitant]
     Indication: HEPATITIS C
     Route: 048
     Dates: start: 20120309, end: 20120403
  4. ATENOLOL [Concomitant]
     Indication: HYPERTENSION
     Route: 048
  5. INCIVEK [Suspect]
     Indication: HEPATITIS C
     Route: 048
     Dates: start: 20120309, end: 20120403
  6. LYRICA [Concomitant]
     Indication: NEURALGIA
     Route: 048
  7. METFORMIN HCL [Concomitant]
     Indication: DIABETES MELLITUS
     Route: 048
  8. OMEPRAZOLE [Concomitant]
     Indication: GASTROOESOPHAGEAL REFLUX DISEASE
     Route: 048
  9. OXYCODONE HCL [Concomitant]
     Indication: PAIN
     Route: 048
  10. OXYCONTIN [Concomitant]
     Indication: PAIN
     Route: 048
  11. COZAAR [Concomitant]
     Indication: HYPERTENSION
     Route: 048

REACTIONS (2)
  - PYREXIA [None]
  - RASH [None]
